FAERS Safety Report 19512261 (Version 2)
Quarter: 2021Q3

REPORT INFORMATION
  Report Type: Spontaneous
  Country: JP (occurrence: JP)
  Receive Date: 20210709
  Receipt Date: 20210714
  Transmission Date: 20211014
  Serious: Yes (Other)
  Sender: FDA-Public Use
  Company Number: JP-GLAXOSMITHKLINE-JP2021JPN146723

PATIENT
  Sex: Female
  Weight: 30 kg

DRUGS (4)
  1. ENSURE [Concomitant]
     Active Substance: AMINO ACIDS\DEXTROSE\ELECTROLYTES NOS\SOYBEAN OIL\VITAMINS
     Dosage: UNK
  2. IMIDAPRIL HYDROCHLORIDE [Concomitant]
     Active Substance: IMIDAPRIL HYDROCHLORIDE
     Dosage: 1 DF, QD
  3. ZANTAC [Suspect]
     Active Substance: RANITIDINE HYDROCHLORIDE
     Dosage: 75 MG, QD
  4. DONEPEZIL HYDROCHLORIDE. [Concomitant]
     Active Substance: DONEPEZIL HYDROCHLORIDE
     Dosage: 1 DF, QD

REACTIONS (13)
  - Hypophagia [Recovered/Resolved]
  - Micturition disorder [Unknown]
  - Movement disorder [Recovering/Resolving]
  - Dehydration [Unknown]
  - Bedridden [Unknown]
  - Dysstasia [Unknown]
  - Prescribed underdose [Unknown]
  - Defaecation disorder [Recovering/Resolving]
  - Constipation [Recovering/Resolving]
  - Depressed level of consciousness [Recovering/Resolving]
  - Asterixis [Recovering/Resolving]
  - Pain [Unknown]
  - Immobilisation syndrome [Recovering/Resolving]
